FAERS Safety Report 18603466 (Version 1)
Quarter: 2020Q4

REPORT INFORMATION
  Report Type: Report from Study
  Country: None (occurrence: NL)
  Receive Date: 20201210
  Receipt Date: 20201210
  Transmission Date: 20210114
  Serious: Yes (Hospitalization, Other)
  Sender: FDA-Public Use
  Company Number: NL-ABBVIE-20K-114-3664067-00

PATIENT
  Sex: Male

DRUGS (3)
  1. DUODOPA [Suspect]
     Active Substance: CARBIDOPA\LEVODOPA
     Dosage: MD: 2.2ML, CD: 2.8ML/H?REMAINS AT 16 HOURS
     Route: 050
  2. DUODOPA [Suspect]
     Active Substance: CARBIDOPA\LEVODOPA
     Indication: PARKINSON^S DISEASE
     Dosage: MD: 1.3ML, CD: 2.8ML/H, ED: 1.5ML, CND: 1.2ML/H?GOES TO 24 HOURS
     Route: 050
  3. DUODOPA [Suspect]
     Active Substance: CARBIDOPA\LEVODOPA
     Dosage: MD: 2.2ML, CD: 2.5ML/H, ED: 0.0ML?PUMP REMAINS AT 16 HOURS
     Route: 050

REACTIONS (7)
  - Agitation [Unknown]
  - Device occlusion [Recovered/Resolved]
  - Restlessness [Recovered/Resolved]
  - Device difficult to use [Unknown]
  - Device information output issue [Unknown]
  - Gastrostomy [Recovered/Resolved]
  - Wrong device used [Unknown]

NARRATIVE: CASE EVENT DATE: 20200915
